FAERS Safety Report 7480685-6 (Version None)
Quarter: 2011Q2

REPORT INFORMATION
  Report Type: 
  Country: None (occurrence: None)
  Receive Date: 20110516
  Receipt Date: 20110502
  Transmission Date: 20111010
  Serious: Yes (Life-Threatening, Hospitalization, Other)
  Sender: FDA-Public Use
  Company Number: US-BAYER-201030187NA

PATIENT
  Age: 37 Year
  Sex: Female
  Weight: 83.9 kg

DRUGS (6)
  1. LEVOXYL [Concomitant]
     Dosage: UNK
     Dates: start: 19980101
  2. YASMIN [Suspect]
     Dosage: UNK
     Dates: start: 20031101, end: 20040401
  3. CELEXA [Concomitant]
     Dosage: UNK
     Dates: start: 20030101
  4. YAZ [Suspect]
     Indication: PRODUCT USED FOR UNKNOWN INDICATION
     Dosage: UNK UNK, UNK
     Route: 048
     Dates: start: 20070601, end: 20080730
  5. YASMIN [Suspect]
     Indication: PRODUCT USED FOR UNKNOWN INDICATION
     Dosage: UNK
     Dates: start: 20020401, end: 20030401
  6. NEXIUM [Concomitant]
     Dosage: UNK
     Dates: start: 20010101

REACTIONS (9)
  - GALLBLADDER NON-FUNCTIONING [None]
  - FATIGUE [None]
  - THROMBOSIS [None]
  - PAIN [None]
  - ASTHENIA [None]
  - CHOLECYSTITIS ACUTE [None]
  - PULMONARY EMBOLISM [None]
  - DEEP VEIN THROMBOSIS [None]
  - DYSPNOEA [None]
